FAERS Safety Report 11189470 (Version 2)
Quarter: 2018Q3

REPORT INFORMATION
  Report Type: Spontaneous
  Country: US (occurrence: US)
  Receive Date: 20150615
  Receipt Date: 20180716
  Transmission Date: 20181010
  Serious: Yes (Hospitalization)
  Sender: FDA-Public Use
  Company Number: US-DSJP-DSU-2014-106574

PATIENT

DRUGS (9)
  1. DIPHENOXYLATE                      /00172302/ [Concomitant]
     Indication: PRODUCT USED FOR UNKNOWN INDICATION
     Dosage: 2.5? 0.025MG, UNK
  2. ANUCORT?HC [Concomitant]
     Active Substance: HYDROCORTISONE ACETATE
     Indication: PRODUCT USED FOR UNKNOWN INDICATION
     Dosage: UNK
     Route: 054
  3. PANTOPRAZOLE                       /01263204/ [Concomitant]
     Active Substance: PANTOPRAZOLE SODIUM
     Indication: GASTRIC PH
     Dosage: UNK
  4. MAGNESIUM CITRATE. [Concomitant]
     Active Substance: MAGNESIUM CITRATE
     Indication: PRODUCT USED FOR UNKNOWN INDICATION
     Dosage: UNK
  5. DESMOPRESSIN ACETATE. [Concomitant]
     Active Substance: DESMOPRESSIN ACETATE
     Indication: PRODUCT USED FOR UNKNOWN INDICATION
     Dosage: UNK
  6. NYSTATIN. [Concomitant]
     Active Substance: NYSTATIN
     Indication: PRODUCT USED FOR UNKNOWN INDICATION
     Dosage: UNK
  7. BENICAR [Suspect]
     Active Substance: OLMESARTAN MEDOXOMIL
     Indication: HYPERTENSION
     Dosage: 20 MG, QD
     Route: 048
     Dates: start: 200812, end: 201308
  8. CIPROFLOXACIN. [Concomitant]
     Active Substance: CIPROFLOXACIN
     Indication: PRODUCT USED FOR UNKNOWN INDICATION
     Dosage: 500 MG, ONCE EVERY 12HR
     Route: 048
  9. CASTOR OIL. [Concomitant]
     Active Substance: CASTOR OIL
     Indication: PRODUCT USED FOR UNKNOWN INDICATION
     Dosage: UNK

REACTIONS (21)
  - Diverticulum intestinal [Unknown]
  - Hepatic function abnormal [Unknown]
  - Flank pain [Unknown]
  - Palpitations [Unknown]
  - Tooth extraction [Unknown]
  - Depression [Not Recovered/Not Resolved]
  - Alanine aminotransferase increased [Unknown]
  - Gait inability [Unknown]
  - Hepatic steatosis [Not Recovered/Not Resolved]
  - Coeliac disease [Unknown]
  - Hypotension [Recovering/Resolving]
  - Feeling abnormal [Unknown]
  - Muscle spasms [Unknown]
  - Oedema [Unknown]
  - Sprue-like enteropathy [Recovering/Resolving]
  - Bladder diverticulum [Not Recovered/Not Resolved]
  - Constipation [Unknown]
  - Diplopia [Unknown]
  - Anal sphincter atony [Not Recovered/Not Resolved]
  - Acute kidney injury [Unknown]
  - Muscle atrophy [Not Recovered/Not Resolved]

NARRATIVE: CASE EVENT DATE: 2013
